FAERS Safety Report 8177410-2 (Version None)
Quarter: 2012Q1

REPORT INFORMATION
  Report Type: 
  Country: None (occurrence: None)
  Receive Date: 20120301
  Receipt Date: 20120227
  Transmission Date: 20120608
  Serious: Yes (Other)
  Sender: FDA-Public Use
  Company Number: US-PFIZER INC-2012035390

PATIENT
  Sex: Male

DRUGS (1)
  1. CADUET [Suspect]
     Dosage: AMLODIPINE BESILATE 5 MG/ATORVASTATIN CALCIUM 20 MG, 1X/DAY
     Route: 048

REACTIONS (1)
  - RENAL TRANSPLANT [None]
